FAERS Safety Report 5547351-5 (Version None)
Quarter: 2007Q4

REPORT INFORMATION
  Report Type: 
  Country: None (occurrence: None)
  Receive Date: 20071211
  Receipt Date: 20071206
  Transmission Date: 20080405
  Serious: Yes (Hospitalization)
  Sender: FDA-Public Use
  Company Number: FR-WYE-G00733307

PATIENT
  Sex: Male
  Weight: 74 kg

DRUGS (9)
  1. TAZOCILLINE [Suspect]
     Indication: SALMONELLOSIS
     Dosage: 12 G TOTAL DAILY
     Route: 042
     Dates: start: 20071003, end: 20071022
  2. PNEUMO 23 [Concomitant]
     Route: 058
     Dates: start: 20071019, end: 20071019
  3. INIPOMP [Concomitant]
     Route: 048
     Dates: end: 20071022
  4. PRIMPERAN INJ [Concomitant]
     Dosage: UNKNOWN
     Dates: end: 20071022
  5. LOVENOX [Concomitant]
     Dosage: UNKNOWN
  6. KARDEGIC [Concomitant]
     Dosage: UNKNOWN
  7. ATENOLOL [Concomitant]
     Dosage: UNKNOWN
  8. PLAVIX [Suspect]
     Route: 048
     Dates: start: 20070924, end: 20071022
  9. HIBEST [Concomitant]
     Route: 058
     Dates: start: 20071019, end: 20071019

REACTIONS (3)
  - AGRANULOCYTOSIS [None]
  - C-REACTIVE PROTEIN INCREASED [None]
  - HAEMOGLOBIN DECREASED [None]
